FAERS Safety Report 20179734 (Version 1)
Quarter: 2021Q4

REPORT INFORMATION
  Report Type: Spontaneous
  Country: DE (occurrence: DE)
  Receive Date: 20211214
  Receipt Date: 20211214
  Transmission Date: 20220304
  Serious: Yes (Other)
  Sender: FDA-Public Use
  Company Number: DE-NOVARTISPH-NVSC2021DE280156

PATIENT
  Sex: Male
  Weight: 71 kg

DRUGS (48)
  1. LENALIDOMIDE [Suspect]
     Active Substance: LENALIDOMIDE
     Indication: Plasma cell myeloma
     Dosage: 25 MG, UNK
     Route: 065
     Dates: start: 20170508, end: 20170528
  2. LENALIDOMIDE [Suspect]
     Active Substance: LENALIDOMIDE
     Dosage: 25 MG, UNK
     Route: 065
     Dates: start: 20170606, end: 20170626
  3. LENALIDOMIDE [Suspect]
     Active Substance: LENALIDOMIDE
     Dosage: 25 MG, UNK
     Route: 065
     Dates: start: 20170703, end: 20170703
  4. LENALIDOMIDE [Suspect]
     Active Substance: LENALIDOMIDE
     Dosage: 25 MG, UNK
     Route: 065
     Dates: start: 20170712, end: 20170716
  5. LENALIDOMIDE [Suspect]
     Active Substance: LENALIDOMIDE
     Dosage: 25 MG, UNK
     Route: 065
     Dates: start: 20170719, end: 20170723
  6. LENALIDOMIDE [Suspect]
     Active Substance: LENALIDOMIDE
     Dosage: 25 MG, UNK
     Route: 065
     Dates: start: 20170731, end: 20170820
  7. LENALIDOMIDE [Suspect]
     Active Substance: LENALIDOMIDE
     Dosage: 25 MG, UNK
     Route: 065
     Dates: start: 20170828, end: 20170917
  8. LENALIDOMIDE [Suspect]
     Active Substance: LENALIDOMIDE
     Dosage: 25 MG, UNK
     Route: 065
     Dates: start: 20170925, end: 20171015
  9. LENALIDOMIDE [Suspect]
     Active Substance: LENALIDOMIDE
     Dosage: 25 MG, UNK
     Route: 065
     Dates: start: 20171023, end: 20171029
  10. LENALIDOMIDE [Suspect]
     Active Substance: LENALIDOMIDE
     Dosage: 25 MG, UNK
     Route: 065
     Dates: start: 20171101, end: 20171113
  11. DEXAMETHASONE [Suspect]
     Active Substance: DEXAMETHASONE
     Indication: Plasma cell myeloma
     Dosage: 40 MG
     Route: 065
     Dates: start: 20170508, end: 20170508
  12. DEXAMETHASONE [Suspect]
     Active Substance: DEXAMETHASONE
     Dosage: 40 MG
     Route: 065
     Dates: start: 20170515, end: 20170515
  13. DEXAMETHASONE [Suspect]
     Active Substance: DEXAMETHASONE
     Dosage: 40 MG
     Route: 065
     Dates: start: 20170522, end: 20170522
  14. DEXAMETHASONE [Suspect]
     Active Substance: DEXAMETHASONE
     Dosage: 40 MG
     Route: 065
     Dates: start: 20170529, end: 20170529
  15. DEXAMETHASONE [Suspect]
     Active Substance: DEXAMETHASONE
     Dosage: 40 MG
     Route: 065
     Dates: start: 20170606, end: 20170606
  16. DEXAMETHASONE [Suspect]
     Active Substance: DEXAMETHASONE
     Dosage: 40 MG
     Route: 065
     Dates: start: 20170613, end: 20170613
  17. DEXAMETHASONE [Suspect]
     Active Substance: DEXAMETHASONE
     Dosage: 40 MG
     Route: 065
     Dates: start: 20170627, end: 20170627
  18. DEXAMETHASONE [Suspect]
     Active Substance: DEXAMETHASONE
     Dosage: 40 MG
     Route: 065
     Dates: start: 20170703, end: 20171114
  19. DEXAMETHASONE [Suspect]
     Active Substance: DEXAMETHASONE
     Dosage: 20 MILLIGRAM UNK
     Route: 065
     Dates: start: 20171120, end: 20181218
  20. KYPROLIS [Suspect]
     Active Substance: CARFILZOMIB
     Indication: Plasma cell myeloma
     Dosage: 20 MG
     Route: 042
     Dates: start: 20170508, end: 20170508
  21. KYPROLIS [Suspect]
     Active Substance: CARFILZOMIB
     Dosage: 27 MG, UNK
     Route: 042
     Dates: start: 20170509, end: 20170509
  22. KYPROLIS [Suspect]
     Active Substance: CARFILZOMIB
     Dosage: 27 MG, UNK
     Route: 042
     Dates: start: 20170515, end: 20170515
  23. KYPROLIS [Suspect]
     Active Substance: CARFILZOMIB
     Dosage: 20 MG
     Route: 042
     Dates: start: 20170516, end: 20170516
  24. KYPROLIS [Suspect]
     Active Substance: CARFILZOMIB
     Dosage: 27 MG, UNK
     Route: 042
     Dates: start: 20170522, end: 20170522
  25. KYPROLIS [Suspect]
     Active Substance: CARFILZOMIB
     Dosage: 27 MG, UNK
     Route: 042
     Dates: start: 20170523, end: 20170523
  26. KYPROLIS [Suspect]
     Active Substance: CARFILZOMIB
     Dosage: 27 MG, UNK
     Route: 042
     Dates: start: 20170603, end: 20170603
  27. KYPROLIS [Suspect]
     Active Substance: CARFILZOMIB
     Dosage: 27 MG, UNK
     Route: 042
     Dates: start: 20170606, end: 20170606
  28. KYPROLIS [Suspect]
     Active Substance: CARFILZOMIB
     Dosage: 27 MG, UNK
     Route: 042
     Dates: start: 20170607, end: 20170607
  29. KYPROLIS [Suspect]
     Active Substance: CARFILZOMIB
     Dosage: 27 MG, UNK
     Route: 042
     Dates: start: 20170613, end: 20170613
  30. KYPROLIS [Suspect]
     Active Substance: CARFILZOMIB
     Dosage: 27 MG, UNK
     Route: 042
     Dates: start: 20170621, end: 20170621
  31. KYPROLIS [Suspect]
     Active Substance: CARFILZOMIB
     Dosage: 27 MG, UNK
     Route: 042
     Dates: start: 20170801, end: 20170801
  32. KYPROLIS [Suspect]
     Active Substance: CARFILZOMIB
     Dosage: 27 MG, UNK
     Route: 042
     Dates: start: 20170807, end: 20170807
  33. KYPROLIS [Suspect]
     Active Substance: CARFILZOMIB
     Dosage: 27 MG, UNK
     Route: 042
     Dates: start: 20170808, end: 20170808
  34. KYPROLIS [Suspect]
     Active Substance: CARFILZOMIB
     Dosage: 27 MG, UNK
     Route: 042
     Dates: start: 20170814, end: 20170814
  35. KYPROLIS [Suspect]
     Active Substance: CARFILZOMIB
     Dosage: 27 MG/M2
     Route: 042
     Dates: start: 20170815, end: 20171108
  36. KYPROLIS [Suspect]
     Active Substance: CARFILZOMIB
     Dosage: 56 MG/M2
     Route: 042
     Dates: start: 20171120, end: 20181211
  37. XGEVA [Concomitant]
     Active Substance: DENOSUMAB
     Indication: Product used for unknown indication
     Dosage: 120 MG, QMO
     Route: 065
     Dates: start: 20170125
  38. METAMIZOLE [Concomitant]
     Active Substance: METAMIZOLE
     Indication: Arthralgia
     Dosage: 160 UNK, Q6H (FOUR TIMES PER DAY)
     Route: 065
     Dates: start: 20150323
  39. TORASEMID RATIOPHARM [Concomitant]
     Indication: Product used for unknown indication
     Dosage: 20 MG, QD
     Route: 065
     Dates: start: 20171127
  40. CALCIUM CARBONATE [Concomitant]
     Active Substance: CALCIUM CARBONATE
     Indication: Osteolysis
     Dosage: 1254 MG
     Route: 065
     Dates: start: 20170504
  41. FENTANYL [Concomitant]
     Active Substance: FENTANYL
     Indication: Arthralgia
     Dosage: 137 MG/H, QOD (EVERY OTHER DAY)
     Route: 065
     Dates: start: 20170405
  42. FILGRASTIM [Concomitant]
     Active Substance: FILGRASTIM
     Indication: Product used for unknown indication
     Dosage: 0.5 MILLILITER, QD
     Route: 065
     Dates: start: 20170717, end: 20170722
  43. BISOPROLOL [Concomitant]
     Active Substance: BISOPROLOL
     Indication: Prophylaxis
     Dosage: UNK 9999.99
     Route: 065
     Dates: start: 20180903
  44. FENTANYL CITRATE [Concomitant]
     Active Substance: FENTANYL CITRATE
     Indication: Arthralgia
     Dosage: 600 UG
     Route: 065
     Dates: start: 20171205, end: 20180102
  45. POLYETHYLENE GLYCOLS [Concomitant]
     Active Substance: POLYETHYLENE GLYCOLS
     Indication: Constipation
     Dosage: UNK 9999.99
     Route: 065
     Dates: start: 20170419
  46. RAMIPRIL [Concomitant]
     Active Substance: RAMIPRIL
     Indication: Prophylaxis
     Dosage: 5 MILLIGRAM
     Route: 065
     Dates: start: 20180903
  47. SODIUM PICOSULFATE [Concomitant]
     Active Substance: SODIUM PICOSULFATE
     Indication: Constipation
     Dosage: UNK UNK, 9999.99 AS NECESSARY
     Route: 065
     Dates: start: 20170628
  48. FILGRASTIM [Concomitant]
     Active Substance: FILGRASTIM
     Indication: Product used for unknown indication
     Dosage: 0.5 ML, QD
     Route: 065
     Dates: start: 20170717

REACTIONS (1)
  - Neutropenia [Recovered/Resolved]

NARRATIVE: CASE EVENT DATE: 20170703
